FAERS Safety Report 11463323 (Version 1)
Quarter: 2015Q3

REPORT INFORMATION
  Report Type: Spontaneous
  Country: US (occurrence: US)
  Receive Date: 20150831
  Receipt Date: 20150831
  Transmission Date: 20151125
  Serious: No
  Sender: FDA-Public Use
  Company Number: US-ELI_LILLY_AND_COMPANY-US201102006920

PATIENT
  Age: 56 Year
  Sex: Female

DRUGS (2)
  1. CYMBALTA [Suspect]
     Active Substance: DULOXETINE HYDROCHLORIDE
     Dosage: 60 MG, 2/D
  2. CYMBALTA [Suspect]
     Active Substance: DULOXETINE HYDROCHLORIDE
     Indication: FIBROMYALGIA
     Dosage: 60 MG, 2/D

REACTIONS (11)
  - Mouth ulceration [Unknown]
  - Pain in jaw [Not Recovered/Not Resolved]
  - Blood pressure increased [Unknown]
  - Migraine with aura [Unknown]
  - Bone loss [Unknown]
  - Arteriosclerosis [Unknown]
  - Tooth injury [Unknown]
  - Gingivitis [Unknown]
  - Bruxism [Unknown]
  - Muscle tightness [Unknown]
  - Nightmare [Not Recovered/Not Resolved]

NARRATIVE: CASE EVENT DATE: 201012
